FAERS Safety Report 6712743-5 (Version None)
Quarter: 2010Q2

REPORT INFORMATION
  Report Type: 
  Country: None (occurrence: None)
  Receive Date: 20100505
  Receipt Date: 20100505
  Transmission Date: 20101027
  Serious: Yes (Hospitalization, Disabling)
  Sender: FDA-Public Use
  Company Number: None

PATIENT
  Sex: Female
  Weight: 115 kg

DRUGS (1)
  1. GENTAMICIN [Suspect]
     Indication: INFECTION
     Dosage: 200 MG DAILY INTRAVENOUSLY
     Route: 042
     Dates: start: 20100406, end: 20100407

REACTIONS (1)
  - RENAL FAILURE ACUTE [None]
